FAERS Safety Report 7992043-6 (Version None)
Quarter: 2011Q4

REPORT INFORMATION
  Report Type: 
  Country: None (occurrence: None)
  Receive Date: 20111219
  Receipt Date: 20110908
  Transmission Date: 20120403
  Serious: No
  Sender: FDA-Public Use
  Company Number: US-ASTRAZENECA-2011SE54335

PATIENT
  Age: 59 Year
  Sex: Male

DRUGS (2)
  1. BLOOD PRESSURE MEDICATION [Concomitant]
  2. CRESTOR [Suspect]
     Route: 048

REACTIONS (5)
  - ARTHRALGIA [None]
  - DYSPNOEA [None]
  - PAIN IN EXTREMITY [None]
  - NECK PAIN [None]
  - URINE COLOUR ABNORMAL [None]
